FAERS Safety Report 15901227 (Version 1)
Quarter: 2019Q1

REPORT INFORMATION
  Report Type: Spontaneous
  Country: CN (occurrence: CN)
  Receive Date: 20190201
  Receipt Date: 20190201
  Transmission Date: 20190417
  Serious: Yes (Hospitalization, Other)
  Sender: FDA-Public Use
  Company Number: CN-PFIZER INC-2019038790

PATIENT
  Age: 74 Year
  Sex: Female

DRUGS (5)
  1. GAI SAN CHUN [Concomitant]
     Indication: MINERAL SUPPLEMENTATION
     Dosage: 0.25 UG, 1X/DAY
     Route: 048
     Dates: start: 20181029, end: 20181206
  2. CELECOXIB. [Suspect]
     Active Substance: CELECOXIB
     Indication: ANALGESIC THERAPY
     Dosage: 0.2 G, 1X/DAY
     Route: 048
     Dates: start: 20181029, end: 20181206
  3. OMEPRAZOLE. [Suspect]
     Active Substance: OMEPRAZOLE
     Indication: GASTROINTESTINAL ULCER
     Dosage: 20 MG, 2X/DAY
     Route: 048
     Dates: start: 20180606, end: 20181206
  4. CALCIUM CARBONATE, COLECALCIFEROL [Concomitant]
     Active Substance: CALCIUM CARBONATE\CHOLECALCIFEROL
     Indication: MINERAL SUPPLEMENTATION
     Dosage: 0.6 G, 2X/DAY
     Route: 048
     Dates: start: 20180606, end: 20181206
  5. PREDNISONE ACETATE [Suspect]
     Active Substance: PREDNISONE ACETATE
     Indication: NEPHROTIC SYNDROME
     Dosage: 30 MG, 1X/DAY
     Route: 048
     Dates: start: 20180606, end: 20181206

REACTIONS (3)
  - Osteoporosis [Recovered/Resolved with Sequelae]
  - Transient ischaemic attack [Recovered/Resolved with Sequelae]
  - Acute myocardial infarction [Recovered/Resolved with Sequelae]

NARRATIVE: CASE EVENT DATE: 20181103
